FAERS Safety Report 16926382 (Version 1)
Quarter: 2019Q4

REPORT INFORMATION
  Report Type: Spontaneous
  Country: GB (occurrence: GB)
  Receive Date: 20191016
  Receipt Date: 20191016
  Transmission Date: 20200122
  Serious: Yes (Other)
  Sender: FDA-Public Use
  Company Number: GB-MYLANLABS-2019M1097295

PATIENT
  Age: 42 Year
  Sex: Male
  Weight: 101 kg

DRUGS (3)
  1. FEXOFENADINE [Suspect]
     Active Substance: FEXOFENADINE HYDROCHLORIDE
     Indication: INFLUENZA LIKE ILLNESS
     Dosage: 1 DOSAGE FORM, QD
     Route: 048
     Dates: start: 20190802, end: 20190802
  2. NIGHT NURSE                        /00447601/ [Concomitant]
     Active Substance: ACETAMINOPHEN\PHOLCODINE\PROMETHAZINE HYDROCHLORIDE
     Dosage: UNK
  3. LORATADINE. [Concomitant]
     Active Substance: LORATADINE
     Dosage: UNK

REACTIONS (4)
  - Anxiety [Unknown]
  - Insomnia [Unknown]
  - Nasal congestion [Unknown]
  - Headache [Unknown]

NARRATIVE: CASE EVENT DATE: 20190802
